FAERS Safety Report 5635090-1 (Version None)
Quarter: 2008Q1

REPORT INFORMATION
  Report Type: 
  Country: None (occurrence: None)
  Receive Date: 20080222
  Receipt Date: 20080212
  Transmission Date: 20080703
  Serious: Yes (Hospitalization)
  Sender: FDA-Public Use
  Company Number: US-PFIZER INC-2006114462

PATIENT
  Sex: Female
  Weight: 68 kg

DRUGS (2)
  1. SUTENT [Suspect]
     Indication: RENAL CELL CARCINOMA
     Route: 048
     Dates: start: 20060103, end: 20060904
  2. SUTENT [Suspect]
     Route: 048
     Dates: start: 20060918, end: 20060921

REACTIONS (1)
  - CEREBROVASCULAR ACCIDENT [None]
